FAERS Safety Report 8000317-8 (Version None)
Quarter: 2011Q4

REPORT INFORMATION
  Report Type: 
  Country: None (occurrence: None)
  Receive Date: 20111222
  Receipt Date: 20111214
  Transmission Date: 20120403
  Serious: Yes (Other)
  Sender: FDA-Public Use
  Company Number: US-JNJFOC-20111206337

PATIENT
  Sex: Male
  Weight: 103.87 kg

DRUGS (8)
  1. NITROSTAT [Concomitant]
     Route: 065
  2. HYDROCHLOROTHIAZIDE [Concomitant]
     Route: 065
  3. METFORMIN HCL [Concomitant]
     Route: 065
     Dates: start: 20111211
  4. REMICADE [Suspect]
     Indication: PSORIATIC ARTHROPATHY
     Route: 042
  5. CLOBEX [Concomitant]
     Route: 061
  6. TACROLIMUS [Concomitant]
     Route: 065
  7. DILTIAZEM HCL [Concomitant]
     Route: 065
  8. LOVASTATIN [Concomitant]
     Route: 065

REACTIONS (1)
  - DIABETES MELLITUS [None]
